FAERS Safety Report 8019240-8 (Version None)
Quarter: 2012Q1

REPORT INFORMATION
  Report Type: 
  Country: None (occurrence: None)
  Receive Date: 20120103
  Receipt Date: 20111224
  Transmission Date: 20120608
  Serious: Yes (Hospitalization, Other)
  Sender: FDA-Public Use
  Company Number: US-BRISTOL-MYERS SQUIBB COMPANY-16317190

PATIENT
  Age: 63 Year
  Sex: Female
  Weight: 61 kg

DRUGS (2)
  1. IXEMPRA KIT [Suspect]
     Indication: ENDOMETRIAL CANCER
     Dosage: LAST DOSE:15SEP11
     Route: 042
     Dates: start: 20110915
  2. CARBOPLATIN [Suspect]
     Indication: ENDOMETRIAL CANCER
     Dosage: LAST DOSE:15SEP11
     Route: 042
     Dates: start: 20110915

REACTIONS (15)
  - HYPOALBUMINAEMIA [None]
  - ABDOMINAL PAIN [None]
  - WHITE BLOOD CELL COUNT DECREASED [None]
  - ANAEMIA [None]
  - HYPOCALCAEMIA [None]
  - HYPERGLYCAEMIA [None]
  - ASCITES [None]
  - HYPONATRAEMIA [None]
  - NEUTROPHIL COUNT DECREASED [None]
  - NAUSEA [None]
  - PLATELET COUNT DECREASED [None]
  - FATIGUE [None]
  - SMALL INTESTINAL OBSTRUCTION [None]
  - DYSPNOEA [None]
  - ABDOMINAL DISTENSION [None]
